FAERS Safety Report 19596222 (Version 1)
Quarter: 2021Q3

REPORT INFORMATION
  Report Type: Spontaneous
  Country: US (occurrence: US)
  Receive Date: 20210723
  Receipt Date: 20210723
  Transmission Date: 20211014
  Serious: No
  Sender: FDA-Public Use
  Company Number: US-AUROBINDO-AUR-APL-2021-003850

PATIENT
  Sex: Male

DRUGS (1)
  1. AMIODARONE HYDROCHLORIDE 200 MG TABLET [Suspect]
     Active Substance: AMIODARONE HYDROCHLORIDE
     Indication: CARDIAC DISORDER
     Dosage: 1 DOSAGE FORM, TWO TIMES A DAY (1 TABLET MORNING/1 TABLET EVENING)
     Route: 065

REACTIONS (2)
  - Dyspnoea [Unknown]
  - Dysphagia [Unknown]

NARRATIVE: CASE EVENT DATE: 20210125
